FAERS Safety Report 13796962 (Version 2)
Quarter: 2017Q3

REPORT INFORMATION
  Report Type: Spontaneous
  Country: IT (occurrence: IT)
  Receive Date: 20170726
  Receipt Date: 20170727
  Transmission Date: 20171127
  Serious: Yes (Hospitalization)
  Sender: FDA-Public Use
  Company Number: IT-ROCHE-1965319

PATIENT
  Age: 41 Year
  Sex: Female

DRUGS (6)
  1. QUENTIAX [Suspect]
     Active Substance: QUETIAPINE FUMARATE
     Indication: BIPOLAR DISORDER
     Dosage: 100 MG FILM COATED TABLETS 60 TABLETS
     Route: 048
     Dates: start: 20170417, end: 20170417
  2. DELORAZEPAM [Suspect]
     Active Substance: DELORAZEPAM
     Indication: ANXIETY
     Route: 048
     Dates: start: 20170417, end: 20170417
  3. FLURAZEPAM [Concomitant]
     Active Substance: FLURAZEPAM\FLURAZEPAM HYDROCHLORIDE
     Dosage: 15 MG HARD CAPSULES 30 CAPSULES
     Route: 065
  4. CITALOPRAM [Suspect]
     Active Substance: CITALOPRAM HYDROBROMIDE
     Indication: DEPRESSION
     Dosage: 40 MG/ML ORAL DROPS SOLUTION
     Route: 048
     Dates: start: 20170417, end: 20170417
  5. RIVOTRIL [Suspect]
     Active Substance: CLONAZEPAM
     Indication: EPILEPSY
     Dosage: 2.5 MG/ML ORAL DROPS SOLUTION 10 ML BOTTEL
     Route: 048
     Dates: start: 20170417, end: 20170417
  6. TOLEP [Concomitant]
     Active Substance: OXCARBAZEPINE
     Dosage: 300 MG TABLETS 50 SCORED TABLETS
     Route: 065

REACTIONS (3)
  - Somnolence [Recovered/Resolved]
  - Drug abuse [Unknown]
  - Electrocardiogram QT prolonged [Recovered/Resolved]

NARRATIVE: CASE EVENT DATE: 20170417
